FAERS Safety Report 7770242-6 (Version None)
Quarter: 2011Q3

REPORT INFORMATION
  Report Type: 
  Country: None (occurrence: None)
  Receive Date: 20110922
  Receipt Date: 20110216
  Transmission Date: 20111222
  Serious: No
  Sender: FDA-Public Use
  Company Number: US-ASTRAZENECA-2011SE08964

PATIENT
  Age: 78 Year
  Sex: Female
  Weight: 73.5 kg

DRUGS (4)
  1. SEROQUEL XR [Suspect]
     Indication: NERVOUSNESS
     Route: 048
     Dates: start: 20090701
  2. LISINOPRIL [Concomitant]
     Indication: HYPERTENSION
  3. PRAVASTATIN [Concomitant]
     Indication: HYPERCHOLESTEROLAEMIA
  4. CARVEDILOL [Concomitant]
     Indication: HYPERTENSION

REACTIONS (3)
  - OROPHARYNGEAL PAIN [None]
  - DYSPHONIA [None]
  - SINUSITIS [None]
